FAERS Safety Report 6808358-0 (Version None)
Quarter: 2010Q2

REPORT INFORMATION
  Report Type: 
  Country: None (occurrence: None)
  Receive Date: 20100629
  Receipt Date: 20090616
  Transmission Date: 20101027
  Serious: No
  Sender: FDA-Public Use
  Company Number: US-PFIZER INC-2009201908

PATIENT
  Sex: Female

DRUGS (1)
  1. TIKOSYN [Suspect]
     Dosage: UNK
     Dates: start: 20090309

REACTIONS (4)
  - CHEST PAIN [None]
  - DIZZINESS [None]
  - DYSPNOEA [None]
  - HEADACHE [None]
